FAERS Safety Report 12754851 (Version 2)
Quarter: 2016Q3

REPORT INFORMATION
  Report Type: Spontaneous
  Country: US (occurrence: US)
  Receive Date: 20160916
  Receipt Date: 20160919
  Transmission Date: 20161109
  Serious: No
  Sender: FDA-Public Use
  Company Number: US-HORIZON-RAV-0183-2016

PATIENT
  Age: 3 Year
  Sex: Male

DRUGS (4)
  1. PROTEIN [Concomitant]
     Active Substance: PROTEIN
  2. RAVICTI [Suspect]
     Active Substance: GLYCEROL PHENYLBUTYRATE
     Indication: ORNITHINE TRANSCARBAMOYLASE DEFICIENCY
     Dosage: 1.8 ML TID
     Dates: start: 20160303
  3. CYCLINEX 2 [Concomitant]
  4. CITRULLINE [Concomitant]
     Active Substance: CITRULLINE

REACTIONS (2)
  - Amino acid level decreased [Unknown]
  - Vomiting [Unknown]

NARRATIVE: CASE EVENT DATE: 20160725
